FAERS Safety Report 5903302-2 (Version None)
Quarter: 2008Q3

REPORT INFORMATION
  Report Type: 
  Country: None (occurrence: None)
  Receive Date: 20080930
  Receipt Date: 20080916
  Transmission Date: 20090109
  Serious: Yes (Hospitalization)
  Sender: FDA-Public Use
  Company Number: B0444251A

PATIENT
  Age: 60 Year
  Sex: Female
  Weight: 112 kg

DRUGS (15)
  1. ROSIGLITAZONE [Suspect]
     Route: 048
     Dates: start: 20020506, end: 20060920
  2. METFORMIN HCL [Concomitant]
     Route: 048
     Dates: start: 20000403
  3. FELODIPINE [Concomitant]
     Indication: HYPERTENSION
     Dates: start: 20020819
  4. METOPROLOL TARTRATE [Concomitant]
     Indication: HYPERTENSION
     Route: 048
     Dates: start: 20020819
  5. AMIODARONE [Concomitant]
     Indication: ARRHYTHMIA
     Dosage: 200MG PER DAY
     Route: 048
     Dates: start: 20020819
  6. PRESTARIUM [Concomitant]
     Indication: HYPERTENSION
     Dosage: 8MG PER DAY
     Route: 048
     Dates: start: 20031027
  7. LEVOTHYROXINUM [Concomitant]
     Indication: HYPOTHYROIDISM
     Dosage: 75UG PER DAY
     Route: 048
     Dates: start: 20050616
  8. WARFARINUM [Concomitant]
     Dosage: 10MG PER DAY
     Route: 048
     Dates: start: 20060125
  9. BETALOC ZOK [Concomitant]
     Indication: HYPERTENSION
     Dosage: 50MG PER DAY
     Route: 048
     Dates: start: 20040823
  10. CORDARONE [Concomitant]
     Indication: ARRHYTHMIA
     Dosage: 200MG PER DAY
     Route: 048
     Dates: start: 20040823
  11. ACCUPRO [Concomitant]
     Indication: HYPERTENSION
     Dosage: 40MG PER DAY
     Route: 048
     Dates: start: 20040823
  12. TENAXUM [Concomitant]
     Indication: HYPERTENSION
     Dosage: 1MG PER DAY
     Route: 048
     Dates: start: 20040823
  13. LOSARTAN [Concomitant]
     Indication: HYPERTENSION
     Dosage: 50MG PER DAY
     Route: 048
     Dates: start: 20051122
  14. AMLODIPINUM [Concomitant]
     Indication: HYPERTENSION
     Dosage: 10MG PER DAY
     Route: 048
     Dates: start: 20050806
  15. BETAXOLOL [Concomitant]
     Indication: HYPERTENSION
     Dosage: 20MG PER DAY
     Route: 048
     Dates: start: 20051122

REACTIONS (3)
  - CARDIAC FAILURE CONGESTIVE [None]
  - DIABETES MELLITUS [None]
  - MYOCARDIAL ISCHAEMIA [None]
